FAERS Safety Report 16876685 (Version 1)
Quarter: 2019Q4

REPORT INFORMATION
  Report Type: Report from Study
  Country: CA (occurrence: CA)
  Receive Date: 20191002
  Receipt Date: 20191002
  Transmission Date: 20200122
  Serious: Yes (Other)
  Sender: FDA-Public Use
  Company Number: CA-GLAXOSMITHKLINE-CA2019AMR162560

PATIENT
  Sex: Female

DRUGS (2)
  1. MEPOLIZUMAB [Suspect]
     Active Substance: MEPOLIZUMAB
     Dosage: 100 MG, Z ((MONTHLY))
     Route: 042
  2. MEPOLIZUMAB [Suspect]
     Active Substance: MEPOLIZUMAB
     Indication: ASTHMA
     Dosage: 100 MG, Z(1 MONTH)
     Route: 042
     Dates: start: 20190731

REACTIONS (5)
  - Obstructive airways disorder [Unknown]
  - Eczema [Unknown]
  - Bronchopulmonary aspergillosis allergic [Unknown]
  - Rash [Unknown]
  - Urticaria [Unknown]
